FAERS Safety Report 4748871-3 (Version None)
Quarter: 2005Q3

REPORT INFORMATION
  Report Type: 
  Country: None (occurrence: None)
  Receive Date: 20050819
  Receipt Date: 20050803
  Transmission Date: 20060218
  Serious: Yes (Hospitalization)
  Sender: FDA-Public Use
  Company Number: BE-GLAXOSMITHKLINE-B0391010A

PATIENT
  Age: 51 Year
  Sex: Male

DRUGS (3)
  1. CEFUROXIME AXETIL [Suspect]
     Indication: BRONCHITIS
     Dosage: 500MG THREE TIMES PER DAY
     Route: 048
  2. DEPAKENE [Concomitant]
     Indication: EPILEPSY
     Route: 065
  3. LAMICTAL [Concomitant]
     Indication: EPILEPSY
     Route: 065

REACTIONS (2)
  - SKIN REACTION [None]
  - VASCULITIS [None]
